FAERS Safety Report 6466809-8 (Version None)
Quarter: 2009Q4

REPORT INFORMATION
  Report Type: 
  Country: None (occurrence: None)
  Receive Date: 20091202
  Receipt Date: 20091123
  Transmission Date: 20100525
  Serious: Yes (Hospitalization)
  Sender: FDA-Public Use
  Company Number: DE-ELI_LILLY_AND_COMPANY-DE200911006037

PATIENT
  Age: 62 Year
  Sex: Female

DRUGS (2)
  1. FORTEO [Suspect]
     Indication: OSTEOPOROSIS
     Dosage: 20 UG, UNKNOWN
     Route: 065
     Dates: start: 20091101, end: 20091101
  2. PREDNISOLONE [Concomitant]
     Dosage: 10 MG, UNKNOWN
     Route: 065

REACTIONS (4)
  - CHILLS [None]
  - DIZZINESS [None]
  - NAUSEA [None]
  - TINNITUS [None]
